FAERS Safety Report 7888793-2 (Version None)
Quarter: 2011Q4

REPORT INFORMATION
  Report Type: 
  Country: None (occurrence: None)
  Receive Date: 20111102
  Receipt Date: 20111102
  Transmission Date: 20120403
  Serious: Yes (Death)
  Sender: FDA-Public Use
  Company Number: None

PATIENT
  Sex: Male

DRUGS (1)
  1. VOTRIENT [Suspect]
     Indication: RENAL CANCER
     Dosage: 200MG DAILY PO
     Route: 048
     Dates: start: 20110611, end: 20111021

REACTIONS (2)
  - CEREBROVASCULAR ACCIDENT [None]
  - RENAL CANCER [None]
